FAERS Safety Report 10434941 (Version 1)
Quarter: 2014Q3

REPORT INFORMATION
  Report Type: Spontaneous
  Country: US (occurrence: None)
  Receive Date: 20140815
  Receipt Date: 20140815
  Transmission Date: 20150326
  Serious: No
  Sender: FDA-Public Use
  Company Number: 2014TUS003336

PATIENT
  Age: 57 Year
  Sex: Female
  Weight: 86.2 kg

DRUGS (4)
  1. KLONOPIN [Concomitant]
     Active Substance: CLONAZEPAM
  2. BRINTELLIX [Suspect]
     Active Substance: VORTIOXETINE HYDROBROMIDE
     Indication: MAJOR DEPRESSION
     Route: 048
     Dates: start: 20140409, end: 20140504
  3. TRAZODONE [Concomitant]
     Active Substance: TRAZODONE HYDROCHLORIDE
  4. PROPANOLOL / (PROPRANOLOL) [Concomitant]

REACTIONS (7)
  - Flushing [None]
  - Anxiety [None]
  - Dizziness [None]
  - Agitation [None]
  - Feeling cold [None]
  - Drug ineffective [None]
  - Irritability [None]

NARRATIVE: CASE EVENT DATE: 201404
